FAERS Safety Report 13737916 (Version 2)
Quarter: 2018Q2

REPORT INFORMATION
  Report Type: Spontaneous
  Country: US (occurrence: US)
  Receive Date: 20170710
  Receipt Date: 20180627
  Transmission Date: 20180711
  Serious: Yes (Other)
  Sender: FDA-Public Use
  Company Number: US-SAOL THERAPEUTICS-2016SAO00984

PATIENT
  Age: 10 Year
  Sex: Male

DRUGS (6)
  1. LIORESAL [Suspect]
     Active Substance: BACLOFEN
     Indication: CEREBRAL PALSY
     Dosage: 174 ?G, \DAY
     Route: 037
  2. BACLOFEN. [Suspect]
     Active Substance: BACLOFEN
     Route: 048
  3. BACLOFEN. [Suspect]
     Active Substance: BACLOFEN
     Indication: MUSCLE SPASTICITY
     Dosage: 100 ?G, \DAY
     Route: 037
     Dates: start: 20160919
  4. LIORESAL [Suspect]
     Active Substance: BACLOFEN
     Dosage: 99.9 ?G, \DAY
     Route: 037
  5. BACLOFEN. [Suspect]
     Active Substance: BACLOFEN
     Indication: CEREBRAL PALSY
     Dosage: UNK ?G, UNK
     Route: 037
  6. LIORESAL [Suspect]
     Active Substance: BACLOFEN
     Indication: MUSCLE SPASTICITY
     Dosage: 360.5 ?G, \DAY
     Route: 037

REACTIONS (11)
  - Therapeutic response decreased [Recovered/Resolved]
  - Precocious puberty [Unknown]
  - Drug withdrawal syndrome [Unknown]
  - Hypotonia [Unknown]
  - Muscle spasms [Unknown]
  - Muscle contracture [Unknown]
  - Sleep disorder [Unknown]
  - Device failure [Unknown]
  - Partial seizures [Unknown]
  - Hypertonia [Recovered/Resolved]
  - Hirsutism [Unknown]

NARRATIVE: CASE EVENT DATE: 201612
